FAERS Safety Report 14014719 (Version 3)
Quarter: 2019Q2

REPORT INFORMATION
  Report Type: Spontaneous
  Country: US (occurrence: US)
  Receive Date: 20170927
  Receipt Date: 20190607
  Transmission Date: 20190711
  Serious: No
  Sender: FDA-Public Use
  Company Number: US-PFIZER INC-2017413590

PATIENT
  Age: 87 Year
  Sex: Male

DRUGS (3)
  1. ASPIRIN. [Suspect]
     Active Substance: ASPIRIN
     Dosage: 81 MG, 1X/DAY
  2. XANAX [Suspect]
     Active Substance: ALPRAZOLAM
     Indication: PANIC ATTACK
     Dosage: 0.75 MG (THREE QUARTERS OF THE BLUE 1 MG), 4X/DAY
  3. XANAX [Suspect]
     Active Substance: ALPRAZOLAM
     Indication: ANXIETY

REACTIONS (7)
  - Nightmare [Unknown]
  - Palpitations [Unknown]
  - Fatigue [Unknown]
  - Vision blurred [Unknown]
  - Feeling abnormal [Unknown]
  - Abnormal dreams [Unknown]
  - Hyperventilation [Unknown]
